FAERS Safety Report 5310386-1 (Version None)
Quarter: 2007Q2

REPORT INFORMATION
  Report Type: 
  Country: None (occurrence: None)
  Receive Date: 20070427
  Receipt Date: 20070419
  Transmission Date: 20071010
  Serious: Yes (Hospitalization)
  Sender: FDA-Public Use
  Company Number: US-ELI_LILLY_AND_COMPANY-US200704004210

PATIENT
  Age: 62 Year
  Sex: Female
  Weight: 74.376 kg

DRUGS (9)
  1. BYETTA [Suspect]
     Indication: DIABETES MELLITUS NON-INSULIN-DEPENDENT
     Dosage: 5 UG, 2/D
     Route: 058
     Dates: start: 20051201, end: 20060301
  2. BYETTA [Suspect]
     Dosage: 10 UG, 2/D
     Route: 058
     Dates: start: 20060401
  3. FEMARA [Concomitant]
     Indication: NEOPLASM MALIGNANT
     Dosage: 2.5 MG, UNKNOWN
     Route: 048
  4. HYDROCHLOROTHIAZIDE [Concomitant]
     Indication: HYPERTENSION
     Dosage: 300 MG, UNKNOWN
     Route: 048
  5. IRBESARTAN [Concomitant]
     Indication: HYPERTENSION
     Dosage: 2.5 MG, UNKNOWN
     Route: 048
  6. ZOCOR [Concomitant]
     Indication: BLOOD CHOLESTEROL INCREASED
     Dosage: 20 MG, DAILY (1/D)
     Route: 048
  7. METFORMIN HCL [Concomitant]
     Indication: DIABETES MELLITUS
     Dosage: 1000 MG, DAILY (1/D)
     Route: 048
  8. SYNTHROID [Concomitant]
     Indication: THYROID DISORDER
     Dosage: 50 UG, DAILY (1/D)
     Route: 048
     Dates: start: 20020101
  9. CALCIUM CARBONATE [Concomitant]

REACTIONS (3)
  - NODULE [None]
  - THYROID CYST [None]
  - WEIGHT DECREASED [None]
